FAERS Safety Report 10735238 (Version 2)
Quarter: 2020Q4

REPORT INFORMATION
  Report Type: Other
  Country: CA (occurrence: CA)
  Receive Date: 20150125
  Receipt Date: 20201111
  Transmission Date: 20210113
  Serious: Yes (Other)
  Sender: FDA-Public Use
  Company Number: CA-APOTEX-2015AP005415

PATIENT
  Age: 63 Year
  Sex: Male
  Weight: 107 kg

DRUGS (1)
  1. APO-DIVALPROEX [Suspect]
     Active Substance: DIVALPROEX SODIUM
     Indication: AFFECTIVE DISORDER
     Dosage: 500 MG, BID
     Route: 048

REACTIONS (3)
  - Urticaria [Recovered/Resolved]
  - Dermatitis [Recovered/Resolved]
  - Product substitution issue [Recovered/Resolved]
